FAERS Safety Report 6600377-2 (Version None)
Quarter: 2010Q1

REPORT INFORMATION
  Report Type: 
  Country: None (occurrence: None)
  Receive Date: 20100224
  Receipt Date: 20100215
  Transmission Date: 20100710
  Serious: No
  Sender: FDA-Public Use
  Company Number: US-B.I. PHARMACEUTICALS,INC./RIDGEFIELD-2009-BP-14260BP

PATIENT
  Sex: Male

DRUGS (12)
  1. SPIRIVA [Suspect]
     Indication: EMPHYSEMA
     Dosage: 18 MCG
     Route: 055
     Dates: start: 20100201
  2. SPIRIVA [Suspect]
     Indication: CHRONIC OBSTRUCTIVE PULMONARY DISEASE
     Dosage: 18 MCG
     Route: 055
     Dates: start: 20090701, end: 20091201
  3. DUONEB [Suspect]
     Indication: EMPHYSEMA
  4. GENERIC IPRATROPIUM ALBUTEROL NEBULIZER [Suspect]
     Indication: CHRONIC OBSTRUCTIVE PULMONARY DISEASE
     Route: 055
  5. OXYGEN [Concomitant]
     Indication: EMPHYSEMA
  6. PROVENTIL [Concomitant]
     Indication: EMPHYSEMA
  7. VENTOLIN [Concomitant]
     Indication: EMPHYSEMA
  8. METHADON [Concomitant]
  9. XALATAN [Concomitant]
  10. COMBIGAN [Concomitant]
  11. AGGAT [Concomitant]
  12. ALBUTEROL SULFATE AND IPRATROPIUM BROMIDE [Concomitant]

REACTIONS (3)
  - CHRONIC OBSTRUCTIVE PULMONARY DISEASE [None]
  - DRUG INEFFECTIVE [None]
  - DYSPNOEA [None]
